FAERS Safety Report 14834352 (Version 1)
Quarter: 2018Q2

REPORT INFORMATION
  Report Type: Spontaneous
  Country: IE (occurrence: IE)
  Receive Date: 20180501
  Receipt Date: 20180501
  Transmission Date: 20180711
  Serious: Yes (Other)
  Sender: FDA-Public Use
  Company Number: IE-BAUSCH-BL-2018-011986

PATIENT
  Sex: Female

DRUGS (2)
  1. MESALAZINE [Suspect]
     Active Substance: MESALAMINE
     Indication: INFLAMMATORY BOWEL DISEASE
     Route: 065
  2. INFLIXIMAB [Suspect]
     Active Substance: INFLIXIMAB
     Indication: INFLAMMATORY BOWEL DISEASE
     Dosage: OVER 1.5 HOURS AT 0, 2, 6 WEEKS AND EVERY 8 WEEKS THEREAFTER.
     Route: 065

REACTIONS (2)
  - Bradycardia [Recovered/Resolved]
  - Condition aggravated [Recovered/Resolved]
